FAERS Safety Report 21216907 (Version 1)
Quarter: 2022Q3

REPORT INFORMATION
  Report Type: Other
  Country: US (occurrence: None)
  Receive Date: 20220816
  Receipt Date: 20220816
  Transmission Date: 20221027
  Serious: Yes (Other)
  Sender: FDA-Public Use
  Company Number: US-ROCHE-2920780

PATIENT
  Age: 71 Year
  Sex: Female

DRUGS (10)
  1. ALECTINIB [Suspect]
     Active Substance: ALECTINIB
     Indication: Lung adenocarcinoma
     Route: 065
  2. ALECTINIB [Suspect]
     Active Substance: ALECTINIB
     Dosage: 37.5 MG/5 ML SUSPENSION
     Route: 065
  3. ALECTINIB [Suspect]
     Active Substance: ALECTINIB
     Dosage: 37.5 MG/5 ML SUSPENSION
     Route: 065
  4. ALECTINIB [Suspect]
     Active Substance: ALECTINIB
     Route: 065
  5. ALECTINIB [Suspect]
     Active Substance: ALECTINIB
     Dosage: ON DAY 7 AND 8
     Route: 065
  6. ALECTINIB [Suspect]
     Active Substance: ALECTINIB
     Dosage: FROM DAY 9
     Route: 065
  7. CARBOPLATIN [Concomitant]
     Active Substance: CARBOPLATIN
     Indication: Lung adenocarcinoma
  8. PEMETREXED [Concomitant]
     Active Substance: PEMETREXED
     Indication: Lung adenocarcinoma
  9. PEMBROLIZUMAB [Concomitant]
     Active Substance: PEMBROLIZUMAB
     Indication: Lung adenocarcinoma
  10. DIPHENHYDRAMINE [Concomitant]
     Active Substance: DIPHENHYDRAMINE

REACTIONS (1)
  - Rash maculo-papular [Recovered/Resolved]
